FAERS Safety Report 6859016-8 (Version None)
Quarter: 2010Q3

REPORT INFORMATION
  Report Type: 
  Country: None (occurrence: None)
  Receive Date: 20100719
  Receipt Date: 20080221
  Transmission Date: 20110219
  Serious: No
  Sender: FDA-Public Use
  Company Number: US-PFIZER INC-2008016666

PATIENT
  Sex: Female
  Weight: 62.7 kg

DRUGS (5)
  1. CHANTIX [Suspect]
     Indication: SMOKING CESSATION THERAPY
     Dates: start: 20080207
  2. CLORAZEPATE DIPOTASSIUM [Concomitant]
  3. TYLENOL [Concomitant]
  4. ALBUTEROL [Concomitant]
     Route: 055
  5. FLOVENT [Concomitant]
     Route: 055

REACTIONS (4)
  - ABDOMINAL DISCOMFORT [None]
  - INCORRECT DOSE ADMINISTERED [None]
  - NAUSEA [None]
  - VOMITING [None]
